FAERS Safety Report 8960538 (Version 1)
Quarter: 2012Q4

REPORT INFORMATION
  Report Type: Spontaneous
  Country: PT (occurrence: None)
  Receive Date: 20121203
  Receipt Date: 20121203
  Transmission Date: 20130627
  Serious: Yes (Other)
  Sender: FDA-Public Use
  Company Number: 2012-19304

PATIENT
  Age: 8 Year
  Sex: Male

DRUGS (1)
  1. PARACETAMOL [Suspect]
     Indication: HEADACHE
     Dosage: 500 at 8 years old, Oral
     Route: 048

REACTIONS (1)
  - Anaphylactic reaction [None]
